FAERS Safety Report 5027035-2 (Version None)
Quarter: 2006Q2

REPORT INFORMATION
  Report Type: 
  Country: None (occurrence: None)
  Receive Date: 20060501
  Receipt Date: 20060201
  Transmission Date: 20061013
  Serious: No
  Sender: FDA-Public Use
  Company Number: 200610631BWH

PATIENT
  Age: 71 Year
  Sex: Female

DRUGS (5)
  1. NEXAVAR [Suspect]
     Indication: METASTATIC RENAL CELL CARCINOMA
     Dosage: 200 MG, BID, ORAL; 400 MG, BID, ORAL
  2. DIOVAN [Concomitant]
  3. ASPIRIN [Concomitant]
  4. HUMULIN [Concomitant]
  5. VITAMIN [Concomitant]

REACTIONS (2)
  - BLISTER [None]
  - PAIN IN EXTREMITY [None]
